FAERS Safety Report 4361529-8 (Version None)
Quarter: 2004Q2

REPORT INFORMATION
  Report Type: 
  Country: None (occurrence: None)
  Receive Date: 20040521
  Receipt Date: 20040303
  Transmission Date: 20050107
  Serious: No
  Sender: FDA-Public Use
  Company Number: US-GLAXOSMITHKLINE-A0501341A

PATIENT
  Age: 41 Year
  Sex: Male
  Weight: 85 kg

DRUGS (1)
  1. ZYBAN [Suspect]
     Dosage: 100MG THREE TIMES PER DAY
     Route: 048
     Dates: start: 20040217, end: 20040229

REACTIONS (6)
  - ARTHRALGIA [None]
  - FATIGUE [None]
  - MYALGIA [None]
  - PYREXIA [None]
  - SERUM SICKNESS [None]
  - URTICARIA [None]
